FAERS Safety Report 6163407-0 (Version None)
Quarter: 2009Q2

REPORT INFORMATION
  Report Type: 
  Country: None (occurrence: None)
  Receive Date: 20090420
  Receipt Date: 20090420
  Transmission Date: 20091009
  Serious: No
  Sender: FDA-Public Use
  Company Number: None

PATIENT
  Age: 61 Year
  Sex: Male
  Weight: 76.7 kg

DRUGS (16)
  1. VARENICLINE [Suspect]
     Indication: SMOKING CESSATION THERAPY
     Dosage: 1 MG BID PO
     Route: 048
     Dates: start: 20070502, end: 20070601
  2. ALBUTEROL HFA ORAL INH [Concomitant]
  3. COAL TAR TOPICAL SHAMPOO [Concomitant]
  4. ENALAPRIL [Concomitant]
  5. FINASTERIDE [Concomitant]
  6. FLUOCINOLONE TOPICAL SOLN [Concomitant]
  7. FREESTYLE BLOOD GLUCOSE TEST STRIP [Concomitant]
  8. KETOCONAZOLE TOPICAL SHAMPOO [Concomitant]
  9. LEVOTHYROXINE SODIUM [Concomitant]
  10. METFORMIN HCL [Concomitant]
  11. MICONAZOLE TOPICAL TINCTURE [Concomitant]
  12. SPIRONOLACTONE [Concomitant]
  13. TERAZOSIN HCL [Concomitant]
  14. TRAMADOL HCL [Concomitant]
  15. VARDENAFIL HCL [Concomitant]
  16. VITAMIN B COMPLEX W/C CAP/TAB [Concomitant]

REACTIONS (1)
  - DELIRIUM [None]
